FAERS Safety Report 23277320 (Version 7)
Quarter: 2025Q4

REPORT INFORMATION
  Report Type: Spontaneous
  Country: US (occurrence: US)
  Receive Date: 20231208
  Receipt Date: 20251103
  Transmission Date: 20260117
  Serious: No
  Sender: PFIZER
  Company Number: US-PFIZER INC-PV202300194799

PATIENT
  Age: 77 Year
  Sex: Female

DRUGS (1)
  1. IBRANCE [Suspect]
     Active Substance: PALBOCICLIB
     Indication: Breast cancer female
     Dosage: 100 MG, CYCLIC (DAYS 1-21 THEN STOP FOR 7 DAYS)

REACTIONS (4)
  - Illness [Unknown]
  - Cough [Unknown]
  - Throat clearing [Unknown]
  - Speech disorder [Unknown]
